FAERS Safety Report 12766660 (Version 1)
Quarter: 2016Q3

REPORT INFORMATION
  Report Type: Spontaneous
  Country: PT (occurrence: PT)
  Receive Date: 20160921
  Receipt Date: 20160921
  Transmission Date: 20161109
  Serious: Yes (Death)
  Sender: FDA-Public Use
  Company Number: PT-CELGENEUS-PRT-2016091020

PATIENT
  Age: 66 Year
  Sex: Male

DRUGS (1)
  1. AZACITIDINE. [Suspect]
     Active Substance: AZACITIDINE
     Indication: MYELODYSPLASTIC SYNDROME
     Route: 065

REACTIONS (5)
  - Abdominal distension [Unknown]
  - Death [Fatal]
  - Iron overload [Unknown]
  - Early satiety [Unknown]
  - Dyspepsia [Unknown]
